FAERS Safety Report 4316532-0 (Version None)
Quarter: 2004Q1

REPORT INFORMATION
  Report Type: 
  Country: None (occurrence: None)
  Receive Date: 20040310
  Receipt Date: 20031105
  Transmission Date: 20041129
  Serious: No
  Sender: FDA-Public Use
  Company Number: FROV000141

PATIENT
  Age: 13 Year
  Sex: Female

DRUGS (2)
  1. FROVA [Suspect]
     Indication: MIGRAINE
     Dosage: 5 MG ORAL
     Route: 048
     Dates: start: 20031027, end: 20031027
  2. MIDRIN (PARACETAMOL) [Concomitant]

REACTIONS (5)
  - CHEST PAIN [None]
  - CHEST WALL PAIN [None]
  - DYSPNOEA [None]
  - HYPOAESTHESIA [None]
  - MYDRIASIS [None]
